FAERS Safety Report 16037809 (Version 4)
Quarter: 2019Q2

REPORT INFORMATION
  Report Type: Spontaneous
  Country: PT (occurrence: PT)
  Receive Date: 20190305
  Receipt Date: 20190410
  Transmission Date: 20190711
  Serious: Yes (Life-Threatening, Hospitalization, Other)
  Sender: FDA-Public Use
  Company Number: PHHY2019PT049275

PATIENT
  Age: 72 Year
  Sex: Female

DRUGS (6)
  1. IBANDRONIC ACID. [Concomitant]
     Active Substance: IBANDRONIC ACID
     Indication: OSTEOPOROSIS
     Dosage: 150 MG, QMO
     Route: 065
  2. CLOPIDOGREL [Concomitant]
     Active Substance: CLOPIDOGREL BISULFATE
     Indication: PRODUCT USED FOR UNKNOWN INDICATION
     Dosage: 75 MG, QD
     Route: 065
  3. METFORMIN, VILDAGLIPTIN [Suspect]
     Active Substance: METFORMIN\VILDAGLIPTIN
     Indication: TYPE 2 DIABETES MELLITUS
     Dosage: 1000/50MG, TWICE-DAILY
     Route: 065
     Dates: end: 20171016
  4. ROSUVASTATIN. [Concomitant]
     Active Substance: ROSUVASTATIN
     Indication: DYSLIPIDAEMIA
     Dosage: 10 MG, QD
     Route: 065
  5. PANTOPRAZOLE [Concomitant]
     Active Substance: PANTOPRAZOLE
     Indication: DYSPEPSIA
     Dosage: 20 MG, QD
     Route: 065
  6. METFORMIN [Suspect]
     Active Substance: METFORMIN HYDROCHLORIDE
     Indication: TYPE 2 DIABETES MELLITUS
     Dosage: 850 MG, QD
     Route: 065
     Dates: end: 20171016

REACTIONS (22)
  - Hypoglycaemia [Recovered/Resolved]
  - Transaminases increased [Unknown]
  - Nausea [Unknown]
  - Rhabdomyolysis [Recovered/Resolved]
  - Lactic acidosis [Recovered/Resolved]
  - Diarrhoea [Unknown]
  - Coma [Unknown]
  - Hypothermia [Unknown]
  - Myopathy [Unknown]
  - Respiratory alkalosis [Recovering/Resolving]
  - Pulmonary embolism [Unknown]
  - Cystitis [Unknown]
  - Acute kidney injury [Recovering/Resolving]
  - Vomiting [Unknown]
  - Dyspepsia [Unknown]
  - Mental status changes [Unknown]
  - Myocardial infarction [Unknown]
  - Abdominal pain [Unknown]
  - Loss of consciousness [Unknown]
  - Mental impairment [Unknown]
  - Iron deficiency anaemia [Unknown]
  - Venous thrombosis [Unknown]

NARRATIVE: CASE EVENT DATE: 201710
